FAERS Safety Report 7170660-3 (Version None)
Quarter: 2010Q4

REPORT INFORMATION
  Report Type: 
  Country: None (occurrence: None)
  Receive Date: 20101217
  Receipt Date: 20101214
  Transmission Date: 20110411
  Serious: Yes (Hospitalization)
  Sender: FDA-Public Use
  Company Number: B0689032A

PATIENT
  Sex: Male

DRUGS (8)
  1. AMOXICILLIN [Suspect]
     Indication: ERYSIPELAS
     Dosage: 2G THREE TIMES PER DAY
     Route: 042
     Dates: start: 20101007, end: 20101010
  2. CLAMOXYL [Suspect]
     Indication: ERYSIPELAS
     Route: 048
     Dates: start: 20101011, end: 20101020
  3. TAMSULOSINE [Concomitant]
     Indication: BENIGN PROSTATIC HYPERPLASIA
     Dosage: 1UNIT PER DAY
     Route: 048
     Dates: start: 20101001
  4. KARDEGIC [Concomitant]
     Dosage: 75MG UNKNOWN
     Route: 048
  5. CHRONADALATE [Concomitant]
     Indication: HYPERTENSION
     Dosage: 30MG UNKNOWN
     Route: 048
  6. SERETIDE [Concomitant]
     Indication: PRODUCT USED FOR UNKNOWN INDICATION
     Route: 065
  7. SIMVASTATIN [Concomitant]
     Indication: DYSLIPIDAEMIA
     Route: 065
  8. SINGULAIR [Concomitant]
     Indication: PRODUCT USED FOR UNKNOWN INDICATION
     Route: 065

REACTIONS (3)
  - OEDEMA PERIPHERAL [None]
  - PERIVASCULAR DERMATITIS [None]
  - PURPURA [None]
